FAERS Safety Report 15673570 (Version 3)
Quarter: 2018Q4

REPORT INFORMATION
  Report Type: Spontaneous
  Country: US (occurrence: US)
  Receive Date: 20181129
  Receipt Date: 20181227
  Transmission Date: 20190205
  Serious: No
  Sender: FDA-Public Use
  Company Number: US-PFIZER INC-2018482591

PATIENT
  Age: 56 Year
  Sex: Female
  Weight: 67 kg

DRUGS (2)
  1. ESTRING [Suspect]
     Active Substance: ESTRADIOL
     Indication: ATROPHIC VULVOVAGINITIS
     Dosage: INSERT ONE RING VAGINALLY EVERY THREE MONTHS
     Route: 067
     Dates: start: 20181112, end: 201811
  2. ESTRING [Suspect]
     Active Substance: ESTRADIOL
     Indication: MENOPAUSE

REACTIONS (2)
  - Vulvovaginal discomfort [Recovered/Resolved]
  - Product use complaint [Recovered/Resolved]

NARRATIVE: CASE EVENT DATE: 20181112
